FAERS Safety Report 8762998 (Version 3)
Quarter: 2012Q4

REPORT INFORMATION
  Report Type: Spontaneous
  Country: US (occurrence: None)
  Receive Date: 20120823
  Receipt Date: 20120910
  Transmission Date: 20130627
  Serious: Yes (Life-Threatening)
  Sender: FDA-Public Use
  Company Number: 2012-3746

PATIENT
  Age: 55 Year
  Sex: Female

DRUGS (8)
  1. DYSPORT [Suspect]
     Indication: GLABELLAR FROWN LINES
     Dosage: (1 in 1 Cycle(s))
     Dates: start: 20120813, end: 20120813
  2. DYSPORT [Suspect]
     Indication: WRINKLES
     Dosage: (1 in 1 Cycle(s))
     Dates: start: 20120813, end: 20120813
  3. DYSPORT [Suspect]
     Dosage: (1 in 1 Cycle(s))
     Dates: start: 20120813, end: 20120813
  4. DYSPORT [Suspect]
     Dosage: (1 in 1 Cycle(s))
     Dates: start: 20120813, end: 20120813
  5. RESTYLANE -L [Suspect]
     Indication: DRUG USE FOR UNKNOWN INDICATION
     Dosage: (1 in 1 Cycle(s))
     Route: 051
     Dates: start: 20120813, end: 20120813
  6. SINEMET 25/100 (SINEMET) [Concomitant]
  7. ALBUTEROL (SALBUTAMOL) [Concomitant]
  8. ACTIVAN (LORAZEPAM) [Concomitant]

REACTIONS (9)
  - Arrhythmia [None]
  - Pulmonary oedema [None]
  - Convulsion [None]
  - Apnoea [None]
  - Pulse absent [None]
  - Cyanosis [None]
  - Presyncope [None]
  - Refusal of treatment by patient [None]
  - Ventricular fibrillation [None]
